FAERS Safety Report 4343987-8 (Version None)
Quarter: 2004Q2

REPORT INFORMATION
  Report Type: 
  Country: None (occurrence: None)
  Receive Date: 20040419
  Receipt Date: 20040402
  Transmission Date: 20050107
  Serious: No
  Sender: FDA-Public Use
  Company Number: A01200401547

PATIENT
  Age: 55 Year
  Sex: Male

DRUGS (5)
  1. PLAVIX [Suspect]
     Indication: CORONARY ANGIOPLASTY
     Dosage: 75 MG QD   ORAL
     Route: 048
     Dates: start: 20030501, end: 20030601
  2. PLAVIX [Suspect]
     Indication: CORONARY ARTERIAL STENT INSERTION
     Dosage: 75 MG QD   ORAL
     Route: 048
     Dates: start: 20030501, end: 20030601
  3. METOPROLOL SUCCINATE [Concomitant]
  4. ZESTRIL [Concomitant]
  5. PRAVASTATIN SODIUM [Concomitant]

REACTIONS (7)
  - ANXIETY [None]
  - CORONARY ANGIOPLASTY [None]
  - CORONARY ARTERIAL STENT INSERTION [None]
  - DIZZINESS [None]
  - FEELING ABNORMAL [None]
  - SELF-MEDICATION [None]
  - SUICIDAL IDEATION [None]
